FAERS Safety Report 5140092-8 (Version None)
Quarter: 2006Q4

REPORT INFORMATION
  Report Type: 
  Country: None (occurrence: None)
  Receive Date: 20061024
  Receipt Date: 20061005
  Transmission Date: 20070319
  Serious: Yes (Hospitalization, Other)
  Sender: FDA-Public Use
  Company Number: US200609001744

PATIENT
  Age: 46 Year
  Sex: Male
  Weight: 90.7 kg

DRUGS (2)
  1. ZYPREXA [Suspect]
     Dosage: 10 MG
     Dates: start: 20010101, end: 20050101
  2. MIRTAZAPINE [Concomitant]

REACTIONS (11)
  - ACETONAEMIA [None]
  - DIABETES MELLITUS [None]
  - DIABETIC COMA [None]
  - HEPATITIS VIRAL [None]
  - HYPERINSULINISM [None]
  - HYPERTENSION [None]
  - KETONURIA [None]
  - METABOLIC DISORDER [None]
  - OBESITY [None]
  - PANCREATITIS [None]
  - VISION BLURRED [None]
